FAERS Safety Report 5893533-2 (Version None)
Quarter: 2008Q3

REPORT INFORMATION
  Report Type: 
  Country: None (occurrence: None)
  Receive Date: 20080919
  Receipt Date: 20080905
  Transmission Date: 20090109
  Serious: Yes (Other)
  Sender: FDA-Public Use
  Company Number: JP-1167210

PATIENT
  Age: 73 Year
  Sex: Female

DRUGS (1)
  1. TRAVATAN Z [Suspect]
     Indication: GLAUCOMA
     Dosage: 1 GTT OD QD OPHTHALMIC
     Route: 047
     Dates: start: 20080516

REACTIONS (1)
  - MACULAR OEDEMA [None]
